FAERS Safety Report 19896739 (Version 1)
Quarter: 2021Q3

REPORT INFORMATION
  Report Type: Spontaneous
  Country: US (occurrence: US)
  Receive Date: 20210929
  Receipt Date: 20210929
  Transmission Date: 20211014
  Serious: Yes (Life-Threatening, Hospitalization)
  Sender: FDA-Public Use
  Company Number: US-GE HEALTHCARE LIFE SCIENCES-2021CSU004771

PATIENT
  Age: 80 Year
  Sex: Female

DRUGS (3)
  1. GADOLINIUM (UNSPECIFIED) [Suspect]
     Active Substance: GADOLINIUM
     Indication: SPINAL DECOMPRESSION
  2. GADOLINIUM (UNSPECIFIED) [Suspect]
     Active Substance: GADOLINIUM
     Indication: LUMBAR SPINAL STENOSIS
  3. GADOLINIUM (UNSPECIFIED) [Suspect]
     Active Substance: GADOLINIUM
     Indication: EPIDUROSCOPY
     Dosage: UNK UNK, SINGLE
     Route: 037

REACTIONS (4)
  - Agitation [Recovered/Resolved]
  - Generalised tonic-clonic seizure [Recovered/Resolved]
  - Off label use [Recovered/Resolved]
  - Contrast encephalopathy [Recovered/Resolved]
